FAERS Safety Report 10621657 (Version 1)
Quarter: 2014Q4

REPORT INFORMATION
  Report Type: Spontaneous
  Country: US (occurrence: None)
  Receive Date: 20141201
  Receipt Date: 20141201
  Transmission Date: 20150529
  Serious: No
  Sender: FDA-Public Use
  Company Number: None

PATIENT
  Age: 66 Year
  Sex: Female
  Weight: 72.58 kg

DRUGS (2)
  1. VAGIFEM [Suspect]
     Active Substance: ESTRADIOL
     Indication: PRURITUS
     Dosage: AT BEDTIME
  2. VAGIFEM [Suspect]
     Active Substance: ESTRADIOL
     Indication: DRY SKIN
     Dosage: AT BEDTIME

REACTIONS (3)
  - Abdominal distension [None]
  - Abdominal pain upper [None]
  - Nausea [None]

NARRATIVE: CASE EVENT DATE: 20141117
